FAERS Safety Report 5673776-3 (Version None)
Quarter: 2008Q1

REPORT INFORMATION
  Report Type: 
  Country: None (occurrence: None)
  Receive Date: 20080319
  Receipt Date: 20080307
  Transmission Date: 20080703
  Serious: Yes (Other)
  Sender: FDA-Public Use
  Company Number: AU-PFIZER INC-2008021571

PATIENT
  Sex: Female

DRUGS (2)
  1. CHAMPIX [Suspect]
     Route: 048
  2. BRENDA-35 ED [Concomitant]

REACTIONS (8)
  - ABNORMAL BEHAVIOUR [None]
  - AGITATION [None]
  - AMNESIA [None]
  - ANGER [None]
  - IMPULSIVE BEHAVIOUR [None]
  - OVERDOSE [None]
  - SLEEP DISORDER [None]
  - SUICIDE ATTEMPT [None]
